FAERS Safety Report 9795482 (Version 2)
Quarter: 2014Q1

REPORT INFORMATION
  Report Type: Spontaneous
  Country: CN (occurrence: CN)
  Receive Date: 20140103
  Receipt Date: 20140103
  Transmission Date: 20141002
  Serious: Yes (Death, Hospitalization)
  Sender: FDA-Public Use
  Company Number: CN-BAYER-2013-148186

PATIENT
  Sex: 0

DRUGS (2)
  1. AVELOX [Suspect]
     Indication: PNEUMONIA
     Dosage: UNK
     Dates: start: 201311
  2. CEPHALOTHIN [Concomitant]
     Indication: PNEUMONIA
     Dosage: UNK
     Dates: start: 201311

REACTIONS (2)
  - Death [Fatal]
  - Mania [Not Recovered/Not Resolved]
